FAERS Safety Report 6156441-8 (Version None)
Quarter: 2009Q2

REPORT INFORMATION
  Report Type: 
  Country: None (occurrence: None)
  Receive Date: 20090416
  Receipt Date: 20090413
  Transmission Date: 20091009
  Serious: Yes (Hospitalization, Other)
  Sender: FDA-Public Use
  Company Number: US-WYE-H08293309

PATIENT
  Sex: Male

DRUGS (3)
  1. TORISEL [Suspect]
     Indication: RENAL CELL CARCINOMA
     Route: 042
     Dates: start: 20081223, end: 20090213
  2. PRILOSEC [Concomitant]
  3. SYNTHROID [Concomitant]

REACTIONS (2)
  - PNEUMONITIS [None]
  - RHABDOMYOLYSIS [None]
